FAERS Safety Report 9293750 (Version 1)
Quarter: 2013Q2

REPORT INFORMATION
  Report Type: Spontaneous
  Country: IT (occurrence: IT)
  Receive Date: 20130516
  Receipt Date: 20130516
  Transmission Date: 20140414
  Serious: Yes (Hospitalization)
  Sender: FDA-Public Use
  Company Number: CHPA2013IT008322

PATIENT
  Age: 35 Year
  Sex: Female
  Weight: 75 kg

DRUGS (1)
  1. PURSENNID [Suspect]
     Dosage: 480 MG, ONCE/SINGLE
     Route: 048
     Dates: start: 20130131, end: 20130131

REACTIONS (1)
  - Abdominal pain [Recovered/Resolved]
